FAERS Safety Report 4883965-3 (Version None)
Quarter: 2006Q1

REPORT INFORMATION
  Report Type: 
  Country: None (occurrence: None)
  Receive Date: 20060113
  Receipt Date: 20060103
  Transmission Date: 20060701
  Serious: Yes (Hospitalization)
  Sender: FDA-Public Use
  Company Number: HQWYE445514JUN04

PATIENT
  Age: 46 Year
  Sex: Female
  Weight: 65.83 kg

DRUGS (3)
  1. PREMPRO [Suspect]
     Indication: DYSMENORRHOEA
     Dosage: ORAL
     Route: 048
     Dates: start: 20010801, end: 20020717
  2. PREMPRO [Suspect]
     Indication: MENOPAUSAL SYMPTOMS
     Dosage: ORAL
     Route: 048
     Dates: start: 20010801, end: 20020717
  3. ATENOLOL [Concomitant]

REACTIONS (22)
  - ANASTOMOTIC COMPLICATION [None]
  - ANTIPHOSPHOLIPID SYNDROME [None]
  - ARTERIOSCLEROSIS [None]
  - CARDIOLIPIN ANTIBODY POSITIVE [None]
  - COAGULOPATHY [None]
  - DEEP VEIN THROMBOSIS [None]
  - FEMORAL ARTERY OCCLUSION [None]
  - GANGRENE [None]
  - GRAFT THROMBOSIS [None]
  - INFLAMMATION [None]
  - INTERNATIONAL NORMALISED RATIO INCREASED [None]
  - LEG AMPUTATION [None]
  - MUSCLE ATROPHY [None]
  - OSTEONECROSIS [None]
  - PERIPHERAL ISCHAEMIA [None]
  - PERIPHERAL VASCULAR DISORDER [None]
  - POSTOPERATIVE WOUND INFECTION [None]
  - PROTHROMBIN TIME PROLONGED [None]
  - SCAR [None]
  - VASCULAR GRAFT COMPLICATION [None]
  - VASCULAR GRAFT OCCLUSION [None]
  - VENOUS OCCLUSION [None]
